FAERS Safety Report 9288057 (Version 1)
Quarter: 2013Q2

REPORT INFORMATION
  Report Type: Report from Study
  Country: US (occurrence: US)
  Receive Date: 20130514
  Receipt Date: 20130514
  Transmission Date: 20140414
  Serious: Yes (Other)
  Sender: FDA-Public Use
  Company Number: US-JNJFOC-20130505017

PATIENT
  Sex: Female
  Weight: 68.49 kg

DRUGS (2)
  1. REMICADE [Suspect]
     Indication: CROHN^S DISEASE
     Route: 042
     Dates: end: 20121029
  2. PREDNISONE [Concomitant]
     Route: 065

REACTIONS (2)
  - Haemorrhage [Unknown]
  - Ulcer [Unknown]
